FAERS Safety Report 11419686 (Version 1)
Quarter: 2015Q3

REPORT INFORMATION
  Report Type: Spontaneous
  Country: US (occurrence: US)
  Receive Date: 20150826
  Receipt Date: 20150826
  Transmission Date: 20151125
  Serious: Yes (Other)
  Sender: FDA-Public Use
  Company Number: US-MEDA-2015080028

PATIENT
  Sex: Female

DRUGS (5)
  1. NORCO [Suspect]
     Active Substance: ACETAMINOPHEN\HYDROCODONE BITARTRATE
     Indication: PAIN
  2. PERCODAN [Suspect]
     Active Substance: ASPIRIN\OXYCODONE HYDROCHLORIDE
  3. SOMA [Suspect]
     Active Substance: CARISOPRODOL
     Indication: MUSCLE RELAXANT THERAPY
  4. PERCODAN [Suspect]
     Active Substance: ASPIRIN\OXYCODONE HYDROCHLORIDE
  5. ADVIL [Suspect]
     Active Substance: IBUPROFEN

REACTIONS (9)
  - Cardiac disorder [Unknown]
  - Trismus [Unknown]
  - Feeling abnormal [Unknown]
  - Decreased activity [Unknown]
  - Somnolence [Unknown]
  - Drug dependence [Unknown]
  - Thrombosis [Unknown]
  - Fatigue [Unknown]
  - Drug withdrawal syndrome [Unknown]
